FAERS Safety Report 9584388 (Version 1)
Quarter: 2013Q4

REPORT INFORMATION
  Report Type: Spontaneous
  Country: US (occurrence: US)
  Receive Date: 20131002
  Receipt Date: 20131002
  Transmission Date: 20140711
  Serious: No
  Sender: FDA-Public Use
  Company Number: US-AMGEN-USASP2013052821

PATIENT
  Age: 59 Year
  Sex: Female
  Weight: 61.22 kg

DRUGS (15)
  1. ENBREL [Suspect]
     Indication: PRODUCT USED FOR UNKNOWN INDICATION
     Dosage: 50 MG, QWK
     Route: 058
  2. DICLOFENAC [Concomitant]
     Dosage: 50 MG, UNK
  3. HYDROXYCHLOROQUINE [Concomitant]
     Dosage: 200 MG, UNK
  4. METHOTREXATE [Concomitant]
     Dosage: 25 MG, UNK
  5. FOLIC ACID [Concomitant]
     Dosage: UNK
  6. BIOTIN [Concomitant]
     Dosage: 5000 UNK, UNK
  7. NEXIUM                             /01479302/ [Concomitant]
     Dosage: 40 MG, UNK
  8. LISINOPRIL [Concomitant]
     Dosage: 30 MG, UNK
  9. SPIRIVA [Concomitant]
     Dosage: UNK
  10. CALCIUM [Concomitant]
     Dosage: 500 MG, UNK
  11. MULTIVITAMINS, PLAIN [Concomitant]
     Dosage: UNK
  12. VITAMIN B [Concomitant]
     Dosage: UNK
  13. PREMARIN [Concomitant]
     Dosage: 0.9 MG, UNK
  14. ASA [Concomitant]
     Dosage: LOW DOSE 81 MG, EC, UNK
  15. KRILL OMEGA RED OIL [Concomitant]
     Dosage: 1000 MG, UNK

REACTIONS (4)
  - Gingival pain [Recovered/Resolved]
  - Gingival swelling [Recovered/Resolved]
  - Sensitivity of teeth [Recovered/Resolved]
  - Injection site pain [Unknown]
